FAERS Safety Report 7118591-9 (Version None)
Quarter: 2010Q4

REPORT INFORMATION
  Report Type: 
  Country: None (occurrence: None)
  Receive Date: 20101123
  Receipt Date: 20100128
  Transmission Date: 20110411
  Serious: Yes (Disabling, Other)
  Sender: FDA-Public Use
  Company Number: PHHY2010NO71795

PATIENT
  Sex: Male

DRUGS (6)
  1. STALEVO 100 [Suspect]
     Indication: PARKINSON'S DISEASE
     Dosage: 100/25/200 MG X 4
     Route: 048
     Dates: start: 20060101
  2. VESICARE [Interacting]
     Dosage: 5 MG 1 TABLET AT NIGHT
  3. CENTYL [Concomitant]
     Dosage: 5 MG X 1
     Route: 048
  4. ZESTRIL [Concomitant]
     Dosage: 20 MG X 2
     Route: 048
  5. ZOCOR [Concomitant]
     Dosage: 40 MG X 1
     Route: 048
  6. METOPROLOL SUCCINATE [Concomitant]
     Dosage: 100 MG X 1
     Route: 048

REACTIONS (2)
  - DRUG INTERACTION [None]
  - HALLUCINATION, VISUAL [None]
